FAERS Safety Report 25661023 (Version 2)
Quarter: 2025Q4

REPORT INFORMATION
  Report Type: Spontaneous
  Country: EU (occurrence: EU)
  Receive Date: 20250808
  Receipt Date: 20251210
  Transmission Date: 20260117
  Serious: Yes (Death, Life-Threatening, Hospitalization)
  Sender: ALEXION PHARMACEUTICALS
  Company Number: None

PATIENT
  Age: 77 Year
  Sex: Male
  Weight: 82 kg

DRUGS (5)
  1. TREMELIMUMAB [Suspect]
     Active Substance: TREMELIMUMAB
     Indication: Hepatic cancer
     Dosage: UNK
     Dates: start: 20250430, end: 20250611
  2. TREMELIMUMAB [Suspect]
     Active Substance: TREMELIMUMAB
     Indication: Hepatocellular carcinoma
  3. DURVALUMAB [Suspect]
     Active Substance: DURVALUMAB
     Indication: Hepatic cancer
     Dosage: UNK
     Dates: start: 20250430, end: 20250611
  4. DURVALUMAB [Suspect]
     Active Substance: DURVALUMAB
     Indication: Hepatocellular carcinoma
  5. PREDNISONE [Concomitant]
     Active Substance: PREDNISONE
     Dosage: UNK
     Route: 065

REACTIONS (7)
  - Myasthenia gravis [Fatal]
  - Myocarditis [Fatal]
  - Myositis [Fatal]
  - Myocarditis-myositis-myasthenia gravis overlap syndrome [Fatal]
  - Hepatitis acute [Fatal]
  - Neurological decompensation [Unknown]
  - Flatulence [Unknown]

NARRATIVE: CASE EVENT DATE: 20250522
